FAERS Safety Report 8556853-9 (Version None)
Quarter: 2012Q3

REPORT INFORMATION
  Report Type: 
  Country: None (occurrence: None)
  Receive Date: 20120801
  Receipt Date: 20120724
  Transmission Date: 20120928
  Serious: Yes (Death, Other)
  Sender: FDA-Public Use
  Company Number: JP-VERTEX PHARMACEUTICALS INC.-AE-2012-008227

PATIENT
  Age: 71 Year
  Sex: Female

DRUGS (8)
  1. RIBAVIRIN [Concomitant]
     Route: 048
     Dates: start: 20120426, end: 20120520
  2. PEGINTERFERON ALFA-2B [Concomitant]
     Indication: HEPATITIS C
     Route: 058
     Dates: start: 20120224
  3. TELAVIC (TELAPREVIR) [Suspect]
     Indication: HEPATITIS C
     Route: 048
     Dates: start: 20120224, end: 20120513
  4. PEGINTERFERON ALFA-2B [Concomitant]
     Route: 058
     Dates: end: 20120530
  5. TELAVIC (TELAPREVIR) [Suspect]
     Route: 048
     Dates: start: 20120514, end: 20120516
  6. TELAVIC (TELAPREVIR) [Suspect]
     Route: 048
     Dates: start: 20120516, end: 20120517
  7. RIBAVIRIN [Concomitant]
     Route: 048
     Dates: start: 20120521, end: 20120601
  8. RIBAVIRIN [Concomitant]
     Indication: HEPATITIS C
     Route: 048
     Dates: start: 20120224, end: 20120425

REACTIONS (4)
  - RETINOPATHY [None]
  - DECREASED APPETITE [None]
  - HAEMOGLOBIN DECREASED [None]
  - ACUTE HEPATIC FAILURE [None]
